FAERS Safety Report 13817154 (Version 2)
Quarter: 2018Q2

REPORT INFORMATION
  Report Type: Spontaneous
  Country: US (occurrence: US)
  Receive Date: 20170731
  Receipt Date: 20180608
  Transmission Date: 20180711
  Serious: Yes (Hospitalization)
  Sender: FDA-Public Use
  Company Number: US-LEXICON PHARMACEUTICALS, INC-17-1606-00547

PATIENT
  Age: 70 Year
  Sex: Male
  Weight: 99.97 kg

DRUGS (5)
  1. CARAFATE [Concomitant]
     Active Substance: SUCRALFATE
  2. TELOTRISTAT ETHYL [Suspect]
     Active Substance: TELOTRISTAT ETHYL
     Indication: CARCINOID SYNDROME
     Route: 048
     Dates: start: 20161013, end: 201707
  3. MULTIVITAMIN [Concomitant]
     Active Substance: VITAMINS
  4. PANTOPRAZOLE SQD [Concomitant]
  5. AFINITOR [Concomitant]
     Active Substance: EVEROLIMUS

REACTIONS (4)
  - Off label use [Unknown]
  - Electrocardiogram QT prolonged [Recovered/Resolved]
  - Hospitalisation [Unknown]
  - Flushing [Unknown]

NARRATIVE: CASE EVENT DATE: 201707
